FAERS Safety Report 14596027 (Version 1)
Quarter: 2018Q1

REPORT INFORMATION
  Report Type: Spontaneous
  Country: DE (occurrence: DE)
  Receive Date: 20180303
  Receipt Date: 20180303
  Transmission Date: 20180509
  Serious: Yes (Other)
  Sender: FDA-Public Use
  Company Number: DE-AUROBINDO-AUR-APL-2017-30464

PATIENT
  Age: 46 Year
  Sex: Female

DRUGS (5)
  1. GABAPENTIN. [Suspect]
     Active Substance: GABAPENTIN
     Indication: TINNITUS
     Route: 065
  2. PREGABALIN. [Suspect]
     Active Substance: PREGABALIN
     Indication: TINNITUS
  3. PREGABALIN. [Suspect]
     Active Substance: PREGABALIN
     Indication: PAIN
     Dosage: 6000 MG, DAILY
     Route: 065
  4. INDOMETACIN [Suspect]
     Active Substance: INDOMETHACIN
     Indication: TINNITUS
     Route: 055
  5. ZOLMITRIPTAN. [Suspect]
     Active Substance: ZOLMITRIPTAN
     Indication: TINNITUS
     Route: 055

REACTIONS (5)
  - Pain [Unknown]
  - Drug ineffective [Unknown]
  - Vertigo [Unknown]
  - Nausea [Unknown]
  - Tooth injury [Recovered/Resolved]
